FAERS Safety Report 9165267 (Version 5)
Quarter: 2013Q2

REPORT INFORMATION
  Report Type: Spontaneous
  Country: US (occurrence: US)
  Receive Date: 20130315
  Receipt Date: 20130508
  Transmission Date: 20140414
  Serious: Yes (Hospitalization)
  Sender: FDA-Public Use
  Company Number: US-JNJFOC-20130302816

PATIENT
  Age: 69 Year
  Sex: Male
  Weight: 86.18 kg

DRUGS (7)
  1. XARELTO [Suspect]
     Indication: DEEP VEIN THROMBOSIS
     Route: 048
     Dates: start: 20130206, end: 20130216
  2. XARELTO [Suspect]
     Indication: DEEP VEIN THROMBOSIS
     Route: 048
     Dates: start: 201302, end: 20130205
  3. LEXAPRO [Concomitant]
     Route: 065
  4. BACLOFEN [Concomitant]
     Route: 065
  5. MIDODRINE [Concomitant]
     Route: 065
  6. ZINC [Concomitant]
     Route: 065
  7. BENTYL [Concomitant]

REACTIONS (1)
  - Erythema multiforme [Recovered/Resolved]
